FAERS Safety Report 22361348 (Version 1)
Quarter: 2023Q2

REPORT INFORMATION
  Report Type: Spontaneous
  Country: GB (occurrence: GB)
  Receive Date: 20230524
  Receipt Date: 20230524
  Transmission Date: 20230722
  Serious: Yes (Other)
  Sender: FDA-Public Use
  Company Number: None

PATIENT
  Age: 69 Year
  Sex: Male
  Weight: 78 kg

DRUGS (17)
  1. TRAMADOL [Suspect]
     Active Substance: TRAMADOL
     Indication: Product used for unknown indication
     Dosage: TAKE ONE TO TWO CAPSULE(S) EVERY 4 TO 6 HOURS W..
     Route: 065
     Dates: start: 20230504
  2. AMITRIPTYLINE HYDROCHLORIDE [Concomitant]
     Active Substance: AMITRIPTYLINE HYDROCHLORIDE
     Indication: Pain
     Dosage: 1 DOSAGE FORMS DAILY; AT NIGHT
     Dates: start: 20230228, end: 20230328
  3. AMLODIPINE [Concomitant]
     Active Substance: AMLODIPINE BESYLATE
     Indication: Product used for unknown indication
     Dosage: 1 DOSAGE FORMS DAILY;
     Dates: start: 20220408
  4. DABIGATRAN ETEXILATE [Concomitant]
     Active Substance: DABIGATRAN ETEXILATE
     Indication: Product used for unknown indication
     Dosage: 2 DOSAGE FORMS DAILY; THIS IS AN ANTIC
     Dates: start: 20220408
  5. DIAZEPAM [Concomitant]
     Active Substance: DIAZEPAM
     Indication: Product used for unknown indication
     Dosage: 2 DOSAGE FORMS DAILY; WHEN REQUIRED
     Dates: start: 20220408
  6. DIORALYTE [Concomitant]
     Active Substance: CITRIC ACID MONOHYDRATE\DEXTROSE\POTASSIUM CATION\SODIUM CHLORIDE
     Indication: Product used for unknown indication
     Dates: start: 20220408
  7. FENCINO [Concomitant]
     Indication: Product used for unknown indication
     Dosage: FIRMLY PRESS WIT..
     Route: 062
     Dates: start: 20230125
  8. FERROUS FUMARATE [Concomitant]
     Active Substance: FERROUS FUMARATE
     Indication: Product used for unknown indication
     Dosage: 1 DOSAGE FORMS DAILY;
     Dates: start: 20220426
  9. FOLIC ACID [Concomitant]
     Active Substance: FOLIC ACID
     Indication: Product used for unknown indication
     Dosage: 1 DOSAGE FORMS DAILY;
     Dates: start: 20220408
  10. HYDROXOCOBALAMIN [Concomitant]
     Active Substance: HYDROXOCOBALAMIN
     Indication: Product used for unknown indication
     Route: 030
     Dates: start: 20220125
  11. LANSOPRAZOLE [Concomitant]
     Active Substance: LANSOPRAZOLE
     Indication: Product used for unknown indication
     Dosage: 1 DOSAGE FORMS DAILY;
     Dates: start: 20220408
  12. FENTANYL [Concomitant]
     Active Substance: FENTANYL
     Indication: Product used for unknown indication
     Dosage: FIRMLY PRESS WIT.
     Route: 062
     Dates: start: 20230223, end: 20230325
  13. OXYCODONE HYDROCHLORIDE [Concomitant]
     Active Substance: OXYCODONE HYDROCHLORIDE
     Indication: Pain
     Dosage: 2.5ML (2.5MG) EVERY 4 TO 6  HOURS. DO NOT EXCEED THE PRESCRIBED DOSE.
     Dates: start: 20230424
  14. OXYPRO PROLONGED RELEASE [Concomitant]
     Indication: Pain
     Dosage: 2 DOSAGE FORMS DAILY;
     Dates: start: 20230425
  15. PEPPERMINT OIL [Concomitant]
     Active Substance: PEPPERMINT OIL
     Indication: Product used for unknown indication
     Dates: start: 20220408
  16. SALIVIX [Concomitant]
     Indication: Product used for unknown indication
     Dosage: USE AS DIRECTED
     Dates: start: 20230213
  17. OXYCODONE HYDROCHLORIDE [Concomitant]
     Active Substance: OXYCODONE HYDROCHLORIDE
     Indication: Product used for unknown indication
     Dosage: EVERY 4 TO 6 HOURS
     Dates: start: 20230428

REACTIONS (1)
  - Rash macular [Recovered/Resolved]
